FAERS Safety Report 4958195-7 (Version None)
Quarter: 2006Q1

REPORT INFORMATION
  Report Type: 
  Country: None (occurrence: None)
  Receive Date: 20060330
  Receipt Date: 20060302
  Transmission Date: 20060701
  Serious: Yes (Hospitalization)
  Sender: FDA-Public Use
  Company Number: BR-ROCHE-438736

PATIENT
  Age: 43 Year
  Sex: Female
  Weight: 48 kg

DRUGS (4)
  1. XELODA [Suspect]
     Route: 048
     Dates: start: 20060115, end: 20060213
  2. INSULIN [Concomitant]
  3. METICORTEN [Concomitant]
  4. IMURAN [Concomitant]

REACTIONS (4)
  - BLINDNESS [None]
  - DEHYDRATION [None]
  - SENSORY LOSS [None]
  - WHITE BLOOD CELL COUNT DECREASED [None]
